FAERS Safety Report 9619913 (Version 2)
Quarter: 2013Q4

REPORT INFORMATION
  Report Type: Spontaneous
  Country: US (occurrence: US)
  Receive Date: 20131014
  Receipt Date: 20131014
  Transmission Date: 20140711
  Serious: No
  Sender: FDA-Public Use
  Company Number: US-PFIZER INC-2013153297

PATIENT
  Age: 65 Year
  Sex: Female
  Weight: 52.15 kg

DRUGS (7)
  1. XELJANZ [Suspect]
     Indication: RHEUMATOID ARTHRITIS
     Dosage: 5 MG, 2X/DAY
     Route: 048
     Dates: start: 2013, end: 2013
  2. METHOTREXATE [Concomitant]
     Indication: RHEUMATOID ARTHRITIS
     Dosage: 15 MG, WEEKLY
  3. FOLIC ACID [Concomitant]
     Indication: RHEUMATOID ARTHRITIS
     Dosage: 1 MG, 1X/DAY (QD)
  4. CENTRUM [Concomitant]
     Dosage: UNK
  5. LISINOPRIL W/HYDROCHLOROTHIAZIDE [Concomitant]
     Dosage: UNK
  6. MOBIC [Concomitant]
     Dosage: UNK
  7. ACIPHEX [Concomitant]
     Dosage: UNK

REACTIONS (1)
  - Hyperkeratosis [Unknown]
